FAERS Safety Report 19315599 (Version 3)
Quarter: 2021Q2

REPORT INFORMATION
  Report Type: Spontaneous
  Country: CA (occurrence: CA)
  Receive Date: 20210527
  Receipt Date: 20210616
  Transmission Date: 20210717
  Serious: Yes (Hospitalization, Other)
  Sender: FDA-Public Use
  Company Number: CA-PURDUE-USA-2021-0264841

PATIENT
  Age: 77 Year
  Sex: Female

DRUGS (117)
  1. SALBUTAMOL SULFATE [Suspect]
     Active Substance: ALBUTEROL SULFATE
     Indication: PRODUCT USED FOR UNKNOWN INDICATION
     Dosage: UNK
     Route: 065
  2. GALANTAMINE HYDROBROMIDE. [Suspect]
     Active Substance: GALANTAMINE HYDROBROMIDE
     Indication: PRODUCT USED FOR UNKNOWN INDICATION
     Dosage: UNK
     Route: 065
  3. GALANTAMINE HYDROBROMIDE. [Suspect]
     Active Substance: GALANTAMINE HYDROBROMIDE
     Dosage: UNK
     Route: 065
  4. MAGNESIUM HYDROXIDE. [Suspect]
     Active Substance: MAGNESIUM HYDROXIDE
     Indication: PRODUCT USED FOR UNKNOWN INDICATION
     Dosage: UNK
     Route: 065
  5. OXAZEPAM. [Suspect]
     Active Substance: OXAZEPAM
     Dosage: UNK
     Route: 065
  6. AGGRENOX [Suspect]
     Active Substance: ASPIRIN\DIPYRIDAMOLE
     Dosage: 2 DF, DAILY [2 DF, QOD]
     Route: 065
  7. DILTIAZEM HYDROCHLORIDE. [Suspect]
     Active Substance: DILTIAZEM HYDROCHLORIDE
     Dosage: 360 MG, DAILY
     Route: 065
  8. DILTIAZEM HYDROCHLORIDE. [Suspect]
     Active Substance: DILTIAZEM HYDROCHLORIDE
     Dosage: 360 MG, DAILY
     Route: 065
  9. DILTIAZEM HYDROCHLORIDE. [Suspect]
     Active Substance: DILTIAZEM HYDROCHLORIDE
     Dosage: UNK
  10. DILTIAZEM HYDROCHLORIDE. [Suspect]
     Active Substance: DILTIAZEM HYDROCHLORIDE
     Dosage: 360 MG, DAILY
  11. DILTIAZEM HYDROCHLORIDE. [Suspect]
     Active Substance: DILTIAZEM HYDROCHLORIDE
     Dosage: UNK
     Route: 065
  12. DILTIAZEM HYDROCHLORIDE. [Suspect]
     Active Substance: DILTIAZEM HYDROCHLORIDE
     Dosage: 360 MG, DAILY
  13. ACETAMINOPHEN. [Concomitant]
     Active Substance: ACETAMINOPHEN
     Indication: PRODUCT USED FOR UNKNOWN INDICATION
     Dosage: UNK
     Route: 065
  14. MORPHINE SULFATE (SIMILAR TO NDA 19?516) [Suspect]
     Active Substance: MORPHINE SULFATE
     Dosage: 10 MG, DAILY
     Route: 065
  15. DIPYRIDAMOLE. [Suspect]
     Active Substance: DIPYRIDAMOLE
     Dosage: 2 DF, DAILY
     Route: 065
  16. DIPYRIDAMOLE. [Suspect]
     Active Substance: DIPYRIDAMOLE
     Dosage: 2 DF, DAILY [2 DF, QD]
  17. FUROSEMIDE. [Suspect]
     Active Substance: FUROSEMIDE
     Dosage: 40 MG, DAILY
     Route: 065
  18. DULCOLAX (BISACODYL) [Suspect]
     Active Substance: BISACODYL
     Dosage: 2 DF, SINGLE [TOTAL]
     Route: 065
  19. OXAZEPAM. [Suspect]
     Active Substance: OXAZEPAM
     Dosage: UNK
     Route: 065
  20. OXAZEPAM. [Suspect]
     Active Substance: OXAZEPAM
     Dosage: UNK
     Route: 065
  21. AGGRENOX [Suspect]
     Active Substance: ASPIRIN\DIPYRIDAMOLE
     Indication: CEREBROVASCULAR ACCIDENT
     Dosage: 2 DF, SINGLE [TOTAL]
     Route: 065
  22. AGGRENOX [Suspect]
     Active Substance: ASPIRIN\DIPYRIDAMOLE
     Dosage: 2 DF, DAILY [2 DF, QOD]
     Route: 065
  23. QUINAPRIL HYDROCHLORIDE. [Suspect]
     Active Substance: QUINAPRIL HYDROCHLORIDE
     Indication: CORONARY ARTERY DISEASE
     Dosage: 40 MG, DAILY
     Route: 065
  24. DILTIAZEM HYDROCHLORIDE. [Suspect]
     Active Substance: DILTIAZEM HYDROCHLORIDE
     Dosage: 360 MG, DAILY
     Route: 065
  25. DILTIAZEM HYDROCHLORIDE. [Suspect]
     Active Substance: DILTIAZEM HYDROCHLORIDE
     Dosage: 360 MG, DAILY
     Route: 065
  26. DILTIAZEM HYDROCHLORIDE. [Suspect]
     Active Substance: DILTIAZEM HYDROCHLORIDE
     Dosage: 360 MG, DAILY
     Route: 065
  27. AMLODIPINE BESILATE [Suspect]
     Active Substance: AMLODIPINE BESYLATE
     Indication: CONSTIPATION
     Dosage: UNK
     Route: 065
  28. DIPYRIDAMOLE. [Suspect]
     Active Substance: DIPYRIDAMOLE
     Dosage: 2 DF, DAILY [2 DF, QD]
  29. DIPYRIDAMOLE. [Suspect]
     Active Substance: DIPYRIDAMOLE
     Dosage: 2 DF, DAILY [2 DF, QOD]
  30. DULCOLAX (BISACODYL) [Suspect]
     Active Substance: BISACODYL
     Indication: CONSTIPATION
     Dosage: 2 DF, DAILY
     Route: 065
  31. QUINAPRIL HYDROCHLORIDE. [Suspect]
     Active Substance: QUINAPRIL HYDROCHLORIDE
     Indication: HYPERTENSION
     Dosage: 40 MG, DAILY
     Route: 065
  32. QUINAPRIL HYDROCHLORIDE. [Suspect]
     Active Substance: QUINAPRIL HYDROCHLORIDE
     Dosage: 20 MG, DAILY
     Route: 065
  33. ACEBUTOLOL HYDROCHLORIDE. [Suspect]
     Active Substance: ACEBUTOLOL HYDROCHLORIDE
     Indication: PRODUCT USED FOR UNKNOWN INDICATION
     Dosage: UNK
     Route: 065
  34. AMITRIPTYLINE HYDROCHLORIDE. [Suspect]
     Active Substance: AMITRIPTYLINE HYDROCHLORIDE
     Indication: PRODUCT USED FOR UNKNOWN INDICATION
     Dosage: UNK
     Route: 065
  35. DILTIAZEM HYDROCHLORIDE. [Suspect]
     Active Substance: DILTIAZEM HYDROCHLORIDE
     Indication: ANGINA PECTORIS
     Dosage: 360 MG, DAILY
     Route: 065
  36. DILTIAZEM HYDROCHLORIDE. [Suspect]
     Active Substance: DILTIAZEM HYDROCHLORIDE
     Dosage: UNK
     Route: 065
  37. DILTIAZEM HYDROCHLORIDE. [Suspect]
     Active Substance: DILTIAZEM HYDROCHLORIDE
     Dosage: 360 MG, DAILY
     Route: 065
  38. DILTIAZEM HYDROCHLORIDE. [Suspect]
     Active Substance: DILTIAZEM HYDROCHLORIDE
     Dosage: 360 MG, DAILY
     Route: 065
  39. DILTIAZEM HYDROCHLORIDE. [Suspect]
     Active Substance: DILTIAZEM HYDROCHLORIDE
     Dosage: UNK
     Route: 065
  40. DILTIAZEM HYDROCHLORIDE. [Suspect]
     Active Substance: DILTIAZEM HYDROCHLORIDE
     Dosage: UNK
     Route: 065
  41. DILTIAZEM HYDROCHLORIDE. [Suspect]
     Active Substance: DILTIAZEM HYDROCHLORIDE
     Dosage: UNK
     Route: 065
  42. MORPHINE SULFATE (SIMILAR TO NDA 19?516) [Suspect]
     Active Substance: MORPHINE SULFATE
     Dosage: UNK
     Route: 065
  43. MORPHINE SULFATE (SIMILAR TO NDA 19?516) [Suspect]
     Active Substance: MORPHINE SULFATE
     Dosage: UNK
     Route: 065
  44. AMITRIPTYLINE HYDROCHLORIDE. [Suspect]
     Active Substance: AMITRIPTYLINE HYDROCHLORIDE
     Indication: PRODUCT USED FOR UNKNOWN INDICATION
     Dosage: UNK
     Route: 065
  45. LACTULOSE. [Suspect]
     Active Substance: LACTULOSE
     Indication: PRODUCT USED FOR UNKNOWN INDICATION
     Dosage: UNK
     Route: 065
  46. GLYCERYL TRINITRATE [Suspect]
     Active Substance: NITROGLYCERIN
     Indication: PRODUCT USED FOR UNKNOWN INDICATION
     Dosage: UNK
     Route: 065
  47. QUINAPRIL HYDROCHLORIDE. [Suspect]
     Active Substance: QUINAPRIL HYDROCHLORIDE
     Dosage: 20 MG, DAILY
  48. QUINAPRIL HYDROCHLORIDE. [Suspect]
     Active Substance: QUINAPRIL HYDROCHLORIDE
     Dosage: 40 MG, DAILY
     Route: 065
  49. QUINAPRIL HYDROCHLORIDE. [Suspect]
     Active Substance: QUINAPRIL HYDROCHLORIDE
     Indication: HYPERTENSION
     Dosage: 20 MG, DAILY
     Route: 065
  50. DILTIAZEM HYDROCHLORIDE. [Suspect]
     Active Substance: DILTIAZEM HYDROCHLORIDE
     Dosage: UNK
     Route: 065
  51. DILTIAZEM HYDROCHLORIDE. [Suspect]
     Active Substance: DILTIAZEM HYDROCHLORIDE
     Dosage: 360 MG, DAILY
     Route: 065
  52. DILTIAZEM HYDROCHLORIDE. [Suspect]
     Active Substance: DILTIAZEM HYDROCHLORIDE
     Dosage: UNK
     Route: 065
  53. ZINC. [Concomitant]
     Active Substance: ZINC
     Indication: PRODUCT USED FOR UNKNOWN INDICATION
     Dosage: UNK
     Route: 065
  54. OXCARBAMAZEPINE [Suspect]
     Active Substance: OXCARBAZEPINE
     Indication: PRODUCT USED FOR UNKNOWN INDICATION
     Dosage: UNK
     Route: 065
  55. MORPHINE SULFATE (SIMILAR TO NDA 19?516) [Suspect]
     Active Substance: MORPHINE SULFATE
     Indication: PAIN
     Dosage: UNK
     Route: 065
  56. MORPHINE SULFATE (SIMILAR TO NDA 19?516) [Suspect]
     Active Substance: MORPHINE SULFATE
     Dosage: 10 MG, DAILY
     Route: 065
  57. OMEPRAZOLE. [Suspect]
     Active Substance: OMEPRAZOLE
     Indication: DUODENAL ULCER
     Dosage: 20 MG, DAILY
     Route: 048
  58. ACETYLSALICYLIC ACID W/CAFFEINE/PARACETAMOL [Suspect]
     Active Substance: ACETAMINOPHEN\ASPIRIN\CAFFEINE\CODEINE PHOSPHATE
     Indication: PRODUCT USED FOR UNKNOWN INDICATION
     Dosage: UNK
     Route: 065
  59. TIOTROPIUM BROMIDE [Suspect]
     Active Substance: TIOTROPIUM BROMIDE
     Indication: CHRONIC OBSTRUCTIVE PULMONARY DISEASE
     Dosage: 18 MCG, DAILY
     Route: 065
  60. DILTIAZEM HYDROCHLORIDE. [Suspect]
     Active Substance: DILTIAZEM HYDROCHLORIDE
     Indication: CHEST PAIN
     Dosage: 360 MG, DAILY
     Route: 065
  61. DILTIAZEM HYDROCHLORIDE. [Suspect]
     Active Substance: DILTIAZEM HYDROCHLORIDE
     Indication: CORONARY ARTERY DISEASE
     Dosage: UNK
  62. DILTIAZEM HYDROCHLORIDE. [Suspect]
     Active Substance: DILTIAZEM HYDROCHLORIDE
     Dosage: UNK
     Route: 065
  63. DILTIAZEM HYDROCHLORIDE. [Suspect]
     Active Substance: DILTIAZEM HYDROCHLORIDE
     Dosage: 360 MG, DAILY
     Route: 065
  64. DILTIAZEM HYDROCHLORIDE. [Suspect]
     Active Substance: DILTIAZEM HYDROCHLORIDE
     Dosage: 360 MG, DAILY
     Route: 065
  65. DILTIAZEM HYDROCHLORIDE. [Suspect]
     Active Substance: DILTIAZEM HYDROCHLORIDE
     Route: 065
  66. DILTIAZEM HYDROCHLORIDE. [Suspect]
     Active Substance: DILTIAZEM HYDROCHLORIDE
     Dosage: 360 MG, DAILY
     Route: 065
  67. DILTIAZEM HYDROCHLORIDE. [Suspect]
     Active Substance: DILTIAZEM HYDROCHLORIDE
     Dosage: 360 MG, DAILY
     Route: 065
  68. DILTIAZEM HYDROCHLORIDE. [Suspect]
     Active Substance: DILTIAZEM HYDROCHLORIDE
     Dosage: UNK
     Route: 065
  69. DILTIAZEM HYDROCHLORIDE. [Suspect]
     Active Substance: DILTIAZEM HYDROCHLORIDE
     Dosage: UNK
  70. DILTIAZEM HYDROCHLORIDE. [Suspect]
     Active Substance: DILTIAZEM HYDROCHLORIDE
     Dosage: 360 MG, DAILY
     Route: 065
  71. DILTIAZEM HYDROCHLORIDE. [Suspect]
     Active Substance: DILTIAZEM HYDROCHLORIDE
     Dosage: 360 MG, DAILY
     Route: 065
  72. CRANBERRY                          /01512301/ [Concomitant]
     Active Substance: CRANBERRY
     Indication: PRODUCT USED FOR UNKNOWN INDICATION
     Dosage: UNK
  73. MORPHINE SULFATE (SIMILAR TO NDA 19?516) [Suspect]
     Active Substance: MORPHINE SULFATE
     Dosage: 10 MG, DAILY
     Route: 065
  74. CARBAMAZEPINE. [Suspect]
     Active Substance: CARBAMAZEPINE
     Dosage: UNK
     Route: 065
  75. CARBAMAZEPINE. [Suspect]
     Active Substance: CARBAMAZEPINE
     Dosage: UNK
     Route: 065
  76. FUROSEMIDE. [Suspect]
     Active Substance: FUROSEMIDE
     Indication: OEDEMA
     Dosage: 40 MG, DAILY
     Route: 065
  77. GLUCOSAMINE [Suspect]
     Active Substance: GLUCOSAMINE
     Indication: PRODUCT USED FOR UNKNOWN INDICATION
     Dosage: UNK
     Route: 065
  78. CYCLOBENZAPRINE HYDROCHLORIDE. [Suspect]
     Active Substance: CYCLOBENZAPRINE HYDROCHLORIDE
     Indication: PRODUCT USED FOR UNKNOWN INDICATION
     Dosage: UNK
     Route: 065
  79. OXAZEPAM. [Suspect]
     Active Substance: OXAZEPAM
     Indication: PRODUCT USED FOR UNKNOWN INDICATION
     Dosage: UNK
     Route: 065
  80. QUINAPRIL HYDROCHLORIDE. [Suspect]
     Active Substance: QUINAPRIL HYDROCHLORIDE
     Dosage: 40 MG, DAILY
     Route: 065
  81. DILTIAZEM HYDROCHLORIDE. [Suspect]
     Active Substance: DILTIAZEM HYDROCHLORIDE
     Indication: HYPERTENSION
     Dosage: UNK
     Route: 065
  82. DILTIAZEM HYDROCHLORIDE. [Suspect]
     Active Substance: DILTIAZEM HYDROCHLORIDE
     Dosage: UNK
     Route: 065
  83. DILTIAZEM HYDROCHLORIDE. [Suspect]
     Active Substance: DILTIAZEM HYDROCHLORIDE
     Dosage: UNK
     Route: 065
  84. DILTIAZEM HYDROCHLORIDE. [Suspect]
     Active Substance: DILTIAZEM HYDROCHLORIDE
     Dosage: 360 MG, DAILY
     Route: 065
  85. DILTIAZEM HYDROCHLORIDE. [Suspect]
     Active Substance: DILTIAZEM HYDROCHLORIDE
     Dosage: UNK
     Route: 065
  86. DILTIAZEM HYDROCHLORIDE. [Suspect]
     Active Substance: DILTIAZEM HYDROCHLORIDE
     Dosage: 360 MG, DAILY
     Route: 065
  87. CYCLOBENZAPRINE. [Suspect]
     Active Substance: CYCLOBENZAPRINE
     Indication: PRODUCT USED FOR UNKNOWN INDICATION
     Dosage: UNK
     Route: 065
  88. AMLODIPINE BESILATE [Suspect]
     Active Substance: AMLODIPINE BESYLATE
     Indication: PRODUCT USED FOR UNKNOWN INDICATION
     Dosage: UNK
     Route: 065
  89. VACCINIUM MACROCARPON [Concomitant]
     Active Substance: CRANBERRY
     Indication: PRODUCT USED FOR UNKNOWN INDICATION
     Dosage: UNK
     Route: 065
  90. MORPHINE SULFATE (SIMILAR TO NDA 19?516) [Suspect]
     Active Substance: MORPHINE SULFATE
     Dosage: UNK
     Route: 065
  91. MORPHINE SULFATE (SIMILAR TO NDA 19?516) [Suspect]
     Active Substance: MORPHINE SULFATE
     Dosage: 10 MG, DAILY
     Route: 065
  92. MORPHINE SULFATE (SIMILAR TO NDA 19?516) [Suspect]
     Active Substance: MORPHINE SULFATE
     Dosage: 10 MG, DAILY
     Route: 065
  93. MORPHINE SULFATE (SIMILAR TO NDA 19?516) [Suspect]
     Active Substance: MORPHINE SULFATE
     Dosage: UNK
     Route: 065
  94. LEVOTHYROXINE SODIUM. [Suspect]
     Active Substance: LEVOTHYROXINE SODIUM
     Indication: PRODUCT USED FOR UNKNOWN INDICATION
     Dosage: UNK
     Route: 065
  95. CARBAMAZEPINE. [Suspect]
     Active Substance: CARBAMAZEPINE
     Indication: PRODUCT USED FOR UNKNOWN INDICATION
     Dosage: UNK
     Route: 065
  96. DIPYRIDAMOLE. [Suspect]
     Active Substance: DIPYRIDAMOLE
     Indication: CEREBROVASCULAR ACCIDENT
     Dosage: 2 DF, DAILY [2 DF, QOD]
     Route: 065
  97. LEVOFLOXACIN. [Suspect]
     Active Substance: LEVOFLOXACIN
     Indication: PRODUCT USED FOR UNKNOWN INDICATION
     Dosage: UNK
     Route: 065
  98. AGGRENOX [Suspect]
     Active Substance: ASPIRIN\DIPYRIDAMOLE
     Dosage: 2 DF, SINGLE [TOTAL]
     Route: 065
  99. QUINAPRIL HYDROCHLORIDE. [Suspect]
     Active Substance: QUINAPRIL HYDROCHLORIDE
     Dosage: 40 MG, DAILY
     Route: 065
  100. DILTIAZEM HYDROCHLORIDE. [Suspect]
     Active Substance: DILTIAZEM HYDROCHLORIDE
     Dosage: UNK
     Route: 065
  101. DILTIAZEM HYDROCHLORIDE. [Suspect]
     Active Substance: DILTIAZEM HYDROCHLORIDE
     Dosage: 360 MG, DAILY
     Route: 065
  102. DILTIAZEM HYDROCHLORIDE. [Suspect]
     Active Substance: DILTIAZEM HYDROCHLORIDE
     Dosage: 360 MG, DAILY
     Route: 065
  103. DILTIAZEM HYDROCHLORIDE. [Suspect]
     Active Substance: DILTIAZEM HYDROCHLORIDE
     Route: 065
  104. DILTIAZEM HYDROCHLORIDE. [Suspect]
     Active Substance: DILTIAZEM HYDROCHLORIDE
     Dosage: 360 MG, DAILY
  105. DILTIAZEM HYDROCHLORIDE. [Suspect]
     Active Substance: DILTIAZEM HYDROCHLORIDE
     Dosage: UNK
     Route: 065
  106. DILTIAZEM HYDROCHLORIDE. [Suspect]
     Active Substance: DILTIAZEM HYDROCHLORIDE
     Dosage: UNK
     Route: 065
  107. MORPHINE SULFATE (SIMILAR TO NDA 19?516) [Suspect]
     Active Substance: MORPHINE SULFATE
     Indication: FIBROMYALGIA
     Dosage: 20 MG, DAILY
     Route: 065
  108. CARBAMAZEPINE. [Suspect]
     Active Substance: CARBAMAZEPINE
     Dosage: UNK
     Route: 065
  109. DIPYRIDAMOLE. [Suspect]
     Active Substance: DIPYRIDAMOLE
     Route: 065
  110. QUINAPRIL HYDROCHLORIDE. [Suspect]
     Active Substance: QUINAPRIL HYDROCHLORIDE
     Indication: CORONARY ARTERY DISEASE
     Dosage: 40 MG, DAILY
     Route: 065
  111. QUINAPRIL HYDROCHLORIDE. [Suspect]
     Active Substance: QUINAPRIL HYDROCHLORIDE
     Dosage: 20 MG, DAILY
  112. ROSUVASTATIN CALCIUM. [Suspect]
     Active Substance: ROSUVASTATIN CALCIUM
     Indication: PRODUCT USED FOR UNKNOWN INDICATION
     Dosage: UNK
     Route: 048
  113. DILTIAZEM HYDROCHLORIDE. [Suspect]
     Active Substance: DILTIAZEM HYDROCHLORIDE
     Dosage: UNK
     Route: 065
  114. DILTIAZEM HYDROCHLORIDE. [Suspect]
     Active Substance: DILTIAZEM HYDROCHLORIDE
     Dosage: UNK
     Route: 065
  115. DILTIAZEM HYDROCHLORIDE. [Suspect]
     Active Substance: DILTIAZEM HYDROCHLORIDE
     Dosage: UNK
     Route: 065
  116. DILTIAZEM HYDROCHLORIDE. [Suspect]
     Active Substance: DILTIAZEM HYDROCHLORIDE
     Dosage: UNK
     Route: 065
  117. AMLODIPINE BESILATE [Suspect]
     Active Substance: AMLODIPINE BESYLATE
     Dosage: UNK, SINGLE [TOTAL]
     Route: 065

REACTIONS (14)
  - Depressed level of consciousness [Recovered/Resolved]
  - Toxicity to various agents [Recovered/Resolved]
  - Balance disorder [Recovered/Resolved]
  - Sedation [Recovered/Resolved]
  - Pain [Recovered/Resolved]
  - Constipation [Recovered/Resolved]
  - Blood calcium decreased [Recovered/Resolved]
  - Cognitive disorder [Recovered/Resolved]
  - Fall [Recovered/Resolved]
  - Mobility decreased [Recovered/Resolved]
  - Creatinine renal clearance decreased [Recovered/Resolved]
  - Sedation complication [Recovered/Resolved]
  - Orthostatic hypotension [Recovered/Resolved]
  - Hypotension [Recovered/Resolved]
